FAERS Safety Report 5609333-4 (Version None)
Quarter: 2008Q1

REPORT INFORMATION
  Report Type: 
  Country: None (occurrence: None)
  Receive Date: 20080131
  Receipt Date: 20070918
  Transmission Date: 20080703
  Serious: Yes (Other)
  Sender: FDA-Public Use
  Company Number: US-WYE-H01037407

PATIENT
  Age: 79 Year
  Sex: Female

DRUGS (12)
  1. TIGECYCLINE [Suspect]
     Indication: ACINETOBACTER BACTERAEMIA
     Dosage: 100 MG LOADING DOSE, FOLLOWED BY 25 OR 50 MG/DAY MAINTENANCE DOSE
     Route: 042
  2. TIGECYCLINE [Suspect]
     Indication: MULTIPLE-DRUG RESISTANCE
  3. TIGECYCLINE [Suspect]
     Indication: PNEUMONIA
  4. TIGECYCLINE [Suspect]
     Indication: ACINETOBACTER INFECTION
  5. COLISTIMETHATE SODIUM [Concomitant]
     Indication: ACINETOBACTER BACTERAEMIA
     Dosage: UNKNOWN DOSE AND FREQUENCY
     Route: 042
  6. COLISTIMETHATE SODIUM [Concomitant]
     Indication: MULTIPLE-DRUG RESISTANCE
  7. COLISTIMETHATE SODIUM [Concomitant]
     Indication: PNEUMONIA
  8. COLISTIMETHATE SODIUM [Concomitant]
     Indication: ACINETOBACTER INFECTION
  9. IMIPENEM [Concomitant]
     Indication: ACINETOBACTER BACTERAEMIA
     Dosage: UNKNOWN DOSE AND FREQUENCY
     Route: 065
  10. IMIPENEM [Concomitant]
     Indication: MULTIPLE-DRUG RESISTANCE
  11. IMIPENEM [Concomitant]
     Indication: PNEUMONIA
  12. IMIPENEM [Concomitant]
     Indication: ACINETOBACTER INFECTION

REACTIONS (1)
  - PATHOGEN RESISTANCE [None]
